FAERS Safety Report 6183847-3 (Version None)
Quarter: 2009Q2

REPORT INFORMATION
  Report Type: 
  Country: None (occurrence: None)
  Receive Date: 20090508
  Receipt Date: 20090428
  Transmission Date: 20091009
  Serious: Yes (Other)
  Sender: FDA-Public Use
  Company Number: US-WYE-H08755009

PATIENT
  Age: 67 Year
  Sex: Male
  Weight: 74 kg

DRUGS (6)
  1. TORISEL [Suspect]
     Indication: RENAL CELL CARCINOMA
     Route: 042
     Dates: start: 20090101, end: 20090323
  2. ALLEGRA [Concomitant]
     Route: 048
     Dates: start: 20090302
  3. SIMVASTATIN [Concomitant]
     Route: 048
     Dates: start: 20090302
  4. FISH OIL [Concomitant]
     Route: 048
     Dates: start: 20090302
  5. NORVASC [Concomitant]
     Route: 048
     Dates: start: 20070312
  6. RANITIDINE [Concomitant]
     Route: 048
     Dates: start: 20070723

REACTIONS (3)
  - CHILLS [None]
  - INTERSTITIAL LUNG DISEASE [None]
  - PYREXIA [None]
